FAERS Safety Report 13417005 (Version 2)
Quarter: 2017Q2

REPORT INFORMATION
  Report Type: Other
  Country: US (occurrence: US)
  Receive Date: 20170406
  Receipt Date: 20170410
  Transmission Date: 20170830
  Serious: No
  Sender: FDA-Public Use
  Company Number: US-SHIRE-US201707728

PATIENT
  Age: 16 Year
  Sex: Female
  Weight: 48.53 kg

DRUGS (1)
  1. LIALDA [Suspect]
     Active Substance: MESALAMINE
     Indication: COLITIS ULCERATIVE
     Dosage: 3.6 G (THREE 1.2 G TABLETS), 1X/DAY:QD
     Route: 048
     Dates: start: 201604

REACTIONS (3)
  - Drug dose omission [Not Recovered/Not Resolved]
  - Product use issue [Not Recovered/Not Resolved]
  - No adverse event [Not Recovered/Not Resolved]

NARRATIVE: CASE EVENT DATE: 201604
